FAERS Safety Report 9319677 (Version 1)
Quarter: 2013Q2

REPORT INFORMATION
  Report Type: Spontaneous
  Country: FR (occurrence: FR)
  Receive Date: 20130530
  Receipt Date: 20130530
  Transmission Date: 20140414
  Serious: Yes (Death, Hospitalization)
  Sender: FDA-Public Use
  Company Number: FR-ELI_LILLY_AND_COMPANY-FR201305007601

PATIENT
  Age: 63 Year
  Sex: Male

DRUGS (4)
  1. ALIMTA [Suspect]
     Indication: LUNG CANCER METASTATIC
     Dosage: UNK
     Dates: start: 20130517, end: 20130517
  2. CARBOPLATINE [Concomitant]
  3. FOLIC ACID [Concomitant]
  4. VITAMIN B12 [Concomitant]

REACTIONS (3)
  - Death [Fatal]
  - Febrile neutropenia [Fatal]
  - Pneumonia [Fatal]
